FAERS Safety Report 12382851 (Version 1)
Quarter: 2016Q2

REPORT INFORMATION
  Report Type: Spontaneous
  Country: US (occurrence: US)
  Receive Date: 20160518
  Receipt Date: 20160518
  Transmission Date: 20160815
  Serious: Yes (Hospitalization, Other)
  Sender: FDA-Public Use
  Company Number: US-MDT-ADR-2016-00169

PATIENT
  Age: 13 Year
  Sex: Male

DRUGS (1)
  1. LIORESAL [Suspect]
     Active Substance: BACLOFEN
     Dosage: 500 MCG/DAY
     Route: 037

REACTIONS (5)
  - Pseudomonas test positive [Recovered/Resolved]
  - Medical device site infection [Recovered/Resolved]
  - Implant site extravasation [Recovered/Resolved]
  - Muscle spasticity [Recovered/Resolved]
  - Pyrexia [Recovered/Resolved]
